FAERS Safety Report 5388336-1 (Version None)
Quarter: 2007Q3

REPORT INFORMATION
  Report Type: 
  Country: None (occurrence: None)
  Receive Date: 20070711
  Receipt Date: 20070702
  Transmission Date: 20080115
  Serious: Yes (Other)
  Sender: FDA-Public Use
  Company Number: 2006-01-0869

PATIENT
  Age: 42 Year
  Sex: Male

DRUGS (2)
  1. PEGINTERFERON ALFA-2B (S-P) (PEGINTERFERON ALFA-2B) [Suspect]
     Indication: HEPATITIS C
  2. RIBAVIRIN [Suspect]
     Indication: HEPATITIS C
     Dosage: ;PO
     Route: 048

REACTIONS (5)
  - BLINDNESS [None]
  - HEADACHE [None]
  - PLEOCYTOSIS [None]
  - VITILIGO [None]
  - VOGT-KOYANAGI-HARADA SYNDROME [None]
